FAERS Safety Report 17289143 (Version 2)
Quarter: 2020Q1

REPORT INFORMATION
  Report Type: Spontaneous
  Country: US (occurrence: US)
  Receive Date: 20200120
  Receipt Date: 20200212
  Transmission Date: 20200409
  Serious: Yes (Other)
  Sender: FDA-Public Use
  Company Number: US-PFIZER INC-2020024207

PATIENT
  Age: 68 Year
  Sex: Female
  Weight: 76.64 kg

DRUGS (8)
  1. OMEPRAZOLE. [Concomitant]
     Active Substance: OMEPRAZOLE
     Dosage: UNK
  2. HCTZ [Concomitant]
     Active Substance: HYDROCHLOROTHIAZIDE
     Dosage: UNK
  3. CHANTIX [Suspect]
     Active Substance: VARENICLINE TARTRATE
     Indication: SMOKING CESSATION THERAPY
     Dosage: UNK
     Dates: start: 2008
  4. SYNTHROID [Concomitant]
     Active Substance: LEVOTHYROXINE SODIUM
     Dosage: UNK
  5. CHANTIX [Suspect]
     Active Substance: VARENICLINE TARTRATE
     Dosage: UNK
     Dates: start: 20180823
  6. CHANTIX [Suspect]
     Active Substance: VARENICLINE TARTRATE
     Dosage: UNK
     Dates: start: 20191213
  7. ZOLOFT [Concomitant]
     Active Substance: SERTRALINE HYDROCHLORIDE
     Dosage: UNK
  8. METFORMIN [Concomitant]
     Active Substance: METFORMIN HYDROCHLORIDE
     Dosage: UNK

REACTIONS (4)
  - Hallucination [Unknown]
  - Nightmare [Unknown]
  - Lung neoplasm malignant [Recovered/Resolved]
  - Insomnia [Unknown]

NARRATIVE: CASE EVENT DATE: 20190822
